FAERS Safety Report 23027271 (Version 1)
Quarter: 2023Q4

REPORT INFORMATION
  Report Type: Spontaneous
  Country: US (occurrence: None)
  Receive Date: 20231003
  Receipt Date: 20231003
  Transmission Date: 20240110
  Serious: Yes (Death)
  Sender: FDA-Public Use
  Company Number: None

PATIENT
  Age: 83 Year
  Sex: Male

DRUGS (1)
  1. SOTYKTU [Suspect]
     Active Substance: DEUCRAVACITINIB
     Indication: Psoriasis
     Dosage: 6MG QD PO?? DIRECTIONS: TK 1 T PO QD
     Route: 048
     Dates: start: 20230615

REACTIONS (1)
  - Death [None]

NARRATIVE: CASE EVENT DATE: 20230830
